FAERS Safety Report 5140885-7 (Version None)
Quarter: 2006Q4

REPORT INFORMATION
  Report Type: 
  Country: None (occurrence: None)
  Receive Date: 20060905
  Receipt Date: 20060626
  Transmission Date: 20070319
  Serious: Yes (Death)
  Sender: FDA-Public Use
  Company Number: 06P-163-0337099-00

PATIENT

DRUGS (1)
  1. TRICOR [Suspect]
     Dosage: 145 MG, PER ORAL
     Route: 048

REACTIONS (1)
  - PANCREATITIS [None]
